FAERS Safety Report 7391441-1 (Version None)
Quarter: 2011Q1

REPORT INFORMATION
  Report Type: 
  Country: None (occurrence: None)
  Receive Date: 20110324
  Receipt Date: 20110311
  Transmission Date: 20110831
  Serious: Yes (Disabling)
  Sender: FDA-Public Use
  Company Number: 2011AP000401

PATIENT
  Age: 72 Year
  Sex: Male

DRUGS (8)
  1. FELODIPINE [Suspect]
     Dosage: 5 MG, QD, PO
     Route: 048
  2. ALFUZOSIN HCL [Concomitant]
  3. ATORVASTATIN [Concomitant]
  4. AMLODIPINE BESYLATE [Suspect]
     Indication: HYPERTENSION
     Dosage: 10MG, QD, PO
     Route: 048
  5. FINASTERIDE [Suspect]
     Indication: BENIGN PROSTATIC HYPERPLASIA
     Dosage: 5 MG, QD, PO
     Route: 048
  6. BISOPROLOL [Concomitant]
  7. LISINOPRIL [Concomitant]
  8. ASPIRIN [Concomitant]

REACTIONS (5)
  - HAEMOGLOBIN DECREASED [None]
  - WRONG DRUG ADMINISTERED [None]
  - ARTHRALGIA [None]
  - MYALGIA [None]
  - DRUG PRESCRIBING ERROR [None]
